FAERS Safety Report 21061800 (Version 1)
Quarter: 2022Q3

REPORT INFORMATION
  Report Type: Spontaneous
  Country: AU (occurrence: AU)
  Receive Date: 20220710
  Receipt Date: 20220710
  Transmission Date: 20221026
  Serious: Yes (Other)
  Sender: FDA-Public Use
  Company Number: AU-SA-SAC20220707000521

PATIENT
  Age: 30 Year
  Sex: Female

DRUGS (4)
  1. PREDNISONE [Suspect]
     Active Substance: PREDNISONE
  2. METHOTREXATE [Suspect]
     Active Substance: METHOTREXATE
  3. LEFLUNOMIDE [Suspect]
     Active Substance: LEFLUNOMIDE
  4. AZATHIOPRINE [Suspect]
     Active Substance: AZATHIOPRINE

REACTIONS (1)
  - Takayasu^s arteritis [Unknown]
